FAERS Safety Report 18200880 (Version 3)
Quarter: 2020Q4

REPORT INFORMATION
  Report Type: Spontaneous
  Country: JP (occurrence: JP)
  Receive Date: 20200826
  Receipt Date: 20201229
  Transmission Date: 20210113
  Serious: Yes (Hospitalization, Disabling, Other)
  Sender: FDA-Public Use
  Company Number: JP-SEATTLE GENETICS-2020SGN03792

PATIENT
  Age: 79 Year
  Sex: Male
  Weight: 64.7 kg

DRUGS (4)
  1. DOXORUBICIN HYDROCHLORIDE. [Suspect]
     Active Substance: DOXORUBICIN HYDROCHLORIDE
     Indication: PERIPHERAL T-CELL LYMPHOMA UNSPECIFIED
     Dosage: 75 MILLIGRAM, Q3WEEKS
     Route: 041
     Dates: start: 20200326, end: 20200710
  2. PREDNISOLONE. [Suspect]
     Active Substance: PREDNISOLONE
     Indication: PERIPHERAL T-CELL LYMPHOMA UNSPECIFIED
     Dosage: 100 MILLIGRAM
     Route: 048
     Dates: start: 20200326, end: 20200714
  3. ENDOXAN [CYCLOPHOSPHAMIDE MONOHYDRATE] [Suspect]
     Active Substance: CYCLOPHOSPHAMIDE
     Indication: PERIPHERAL T-CELL LYMPHOMA UNSPECIFIED
     Dosage: 1100 MILLIGRAM, Q3WEEKS
     Route: 041
     Dates: start: 20200326, end: 20200710
  4. ADCETRIS [Suspect]
     Active Substance: BRENTUXIMAB VEDOTIN
     Indication: PERIPHERAL T-CELL LYMPHOMA UNSPECIFIED
     Dosage: 100 MILLIGRAM, Q3WEEKS
     Route: 041
     Dates: start: 20200326, end: 20200710

REACTIONS (4)
  - Otorrhoea [Recovered/Resolved with Sequelae]
  - Taste disorder [Not Recovered/Not Resolved]
  - Febrile neutropenia [Recovered/Resolved]
  - Brain abscess [Recovered/Resolved with Sequelae]

NARRATIVE: CASE EVENT DATE: 20200405
